FAERS Safety Report 10673753 (Version 2)
Quarter: 2014Q4

REPORT INFORMATION
  Report Type: Spontaneous
  Country: US (occurrence: US)
  Receive Date: 20141224
  Receipt Date: 20141224
  Transmission Date: 20150529
  Serious: No
  Sender: FDA-Public Use
  Company Number: US-ELI_LILLY_AND_COMPANY-US201404001044

PATIENT
  Sex: Female

DRUGS (6)
  1. PRASUGREL HYDROCHLORIDE [Suspect]
     Active Substance: PRASUGREL HYDROCHLORIDE
     Indication: STENT PLACEMENT
     Dosage: 10 MG, UNK
     Dates: start: 20140117, end: 20140326
  2. LOSARTAN [Concomitant]
     Active Substance: LOSARTAN
     Dosage: 50 MG, BID
  3. CRESTOR [Concomitant]
     Active Substance: ROSUVASTATIN CALCIUM
     Dosage: 10 MG, QD
  4. METOPROLOL [Concomitant]
     Active Substance: METOPROLOL
     Dosage: 50 MG, BID
  5. METFORMIN [Concomitant]
     Active Substance: METFORMIN HYDROCHLORIDE
     Dosage: 500 MG, UNK
  6. ASPIRIN. [Concomitant]
     Active Substance: ASPIRIN
     Dosage: 81 MG, BID

REACTIONS (1)
  - Atrial fibrillation [Unknown]
